FAERS Safety Report 24542640 (Version 1)
Quarter: 2024Q4

REPORT INFORMATION
  Report Type: Report from Study
  Country: US (occurrence: US)
  Receive Date: 20241024
  Receipt Date: 20241024
  Transmission Date: 20250115
  Serious: Yes (Other)
  Sender: ALEXION PHARMACEUTICALS
  Company Number: US-AstraZeneca-CH-00720957A

PATIENT
  Age: 75 Year

DRUGS (5)
  1. FARXIGA [Suspect]
     Active Substance: DAPAGLIFLOZIN PROPANEDIOL
     Dosage: UNK
  2. CHLORHEXIDINE [Concomitant]
     Active Substance: CHLORHEXIDINE
  3. LOVENOX [Concomitant]
     Active Substance: ENOXAPARIN SODIUM
  4. FUROSEMIDE [Concomitant]
     Active Substance: FUROSEMIDE
  5. SODIUM CHLORIDE [Concomitant]
     Active Substance: SODIUM CHLORIDE

REACTIONS (9)
  - Urinary retention [Unknown]
  - Drug intolerance [Unknown]
  - Fluid retention [Unknown]
  - Dyspnoea [Unknown]
  - Bundle branch block right [Unknown]
  - Oedema peripheral [Unknown]
  - Leukocyte adhesion deficiency [Unknown]
  - Bundle branch block left [Unknown]
  - Atrioventricular block [Unknown]
